FAERS Safety Report 22362821 (Version 1)
Quarter: 2023Q2

REPORT INFORMATION
  Report Type: Spontaneous
  Country: IN (occurrence: IN)
  Receive Date: 20230524
  Receipt Date: 20230524
  Transmission Date: 20230722
  Serious: Yes (Hospitalization)
  Sender: FDA-Public Use
  Company Number: IN-STRIDES ARCOLAB LIMITED-2023SP007607

PATIENT
  Age: 37 Year
  Sex: Male

DRUGS (1)
  1. METHOTREXATE [Suspect]
     Active Substance: METHOTREXATE
     Indication: Psoriasis
     Dosage: UNK
     Route: 065

REACTIONS (7)
  - Lip erosion [Recovered/Resolved]
  - Intentional product misuse [Unknown]
  - Liver function test abnormal [Recovered/Resolved]
  - Skin erosion [Recovered/Resolved]
  - Skin ulcer [Recovered/Resolved]
  - Skin haemorrhage [Recovered/Resolved]
  - Toxicity to various agents [Unknown]
